FAERS Safety Report 10620617 (Version 4)
Quarter: 2015Q2

REPORT INFORMATION
  Report Type: Report from Study
  Country: US (occurrence: US)
  Receive Date: 20141202
  Receipt Date: 20150401
  Transmission Date: 20150821
  Serious: Yes (Hospitalization, Other)
  Sender: FDA-Public Use
  Company Number: US-ACTELION-A-US2013-92672

PATIENT
  Age: 33 Year
  Sex: Female

DRUGS (4)
  1. VELETRI [Suspect]
     Active Substance: EPOPROSTENOL
     Dosage: 30.5 NG/KG, PER MIN
     Route: 042
  2. VELETRI [Suspect]
     Active Substance: EPOPROSTENOL
     Indication: PULMONARY ARTERIAL HYPERTENSION
     Dosage: 12 NG/KG, PER MIN
     Route: 041
     Dates: start: 20131019
  3. ADCIRCA [Concomitant]
     Active Substance: TADALAFIL
  4. VELETRI [Suspect]
     Active Substance: EPOPROSTENOL
     Dosage: 33 UNK, UNK
     Route: 041

REACTIONS (16)
  - Catheter site discharge [Recovering/Resolving]
  - Pruritus [Unknown]
  - Catheter site related reaction [Unknown]
  - Device occlusion [Unknown]
  - Device related infection [Unknown]
  - Peripheral swelling [Unknown]
  - Blood culture positive [Recovering/Resolving]
  - Catheter site infection [Recovering/Resolving]
  - Cholelithiasis [Unknown]
  - Device malfunction [Unknown]
  - Device related sepsis [Recovering/Resolving]
  - Device breakage [Unknown]
  - Chemical injury [Unknown]
  - Spinal fracture [Unknown]
  - Staphylococcal bacteraemia [Recovering/Resolving]
  - Weight decreased [Unknown]

NARRATIVE: CASE EVENT DATE: 20140910
